FAERS Safety Report 20089390 (Version 1)
Quarter: 2021Q4

REPORT INFORMATION
  Report Type: Spontaneous
  Country: US (occurrence: None)
  Receive Date: 20211119
  Receipt Date: 20211119
  Transmission Date: 20220303
  Serious: No
  Sender: FDA-Public Use
  Company Number: US-Hikma Pharmaceuticals USA Inc.-US-H14001-20-05397

PATIENT
  Age: 85 Year
  Sex: Male

DRUGS (1)
  1. IPRATROPIUM [Suspect]
     Active Substance: IPRATROPIUM
     Indication: Nasal congestion
     Dosage: TWO SPRAYS PER NOSTRIL TWICE DAILY
     Route: 045

REACTIONS (2)
  - Product use in unapproved indication [Unknown]
  - Dry mouth [Unknown]
